FAERS Safety Report 6692094-8 (Version None)
Quarter: 2010Q2

REPORT INFORMATION
  Report Type: 
  Country: None (occurrence: None)
  Receive Date: 20100422
  Receipt Date: 20091005
  Transmission Date: 20101027
  Serious: No
  Sender: FDA-Public Use
  Company Number: US-ASTRAZENECA-2009SE18102

PATIENT
  Sex: Female

DRUGS (3)
  1. TOPROL-XL [Suspect]
     Route: 048
     Dates: start: 20090101, end: 20090101
  2. TOPROL-XL [Suspect]
     Route: 048
     Dates: start: 20090101
  3. ACIPHEX [Concomitant]

REACTIONS (1)
  - HAIR COLOUR CHANGES [None]
